FAERS Safety Report 17070401 (Version 1)
Quarter: 2019Q4

REPORT INFORMATION
  Report Type: Spontaneous
  Country: US (occurrence: US)
  Receive Date: 20191125
  Receipt Date: 20191125
  Transmission Date: 20200122
  Serious: Yes (Other)
  Sender: FDA-Public Use
  Company Number: US-SUNOVION-2019SUN005119

PATIENT
  Sex: Female

DRUGS (1)
  1. LONHALA MAGNAIR [Suspect]
     Active Substance: GLYCOPYRROLATE
     Indication: PRODUCT USED FOR UNKNOWN INDICATION
     Dosage: UNK
     Route: 055
     Dates: start: 20190909

REACTIONS (4)
  - Eye pain [Not Recovered/Not Resolved]
  - Urinary retention [Not Recovered/Not Resolved]
  - Fluid overload [Not Recovered/Not Resolved]
  - Blood pressure increased [Not Recovered/Not Resolved]
